FAERS Safety Report 16139750 (Version 1)
Quarter: 2019Q2

REPORT INFORMATION
  Report Type: Spontaneous
  Country: CA (occurrence: CA)
  Receive Date: 20190401
  Receipt Date: 20190401
  Transmission Date: 20190711
  Serious: Yes (Other)
  Sender: FDA-Public Use
  Company Number: CA-ACS-001362

PATIENT
  Age: 55 Year
  Sex: Male

DRUGS (6)
  1. AZITHROMYCIN ANHYDROUS. [Suspect]
     Active Substance: AZITHROMYCIN ANHYDROUS
     Indication: GONORRHOEA
     Dosage: ?
     Route: 048
  2. ESOMEPRAZOLE. [Concomitant]
     Active Substance: ESOMEPRAZOLE MAGNESIUM
     Indication: GASTROOESOPHAGEAL REFLUX DISEASE
     Route: 065
  3. CEFTRIAXONE. [Suspect]
     Active Substance: CEFTRIAXONE
     Indication: GONORRHOEA
     Dosage: RECONSTITUTED WITH 0.9 ML OF 1% LIDOCAINE
     Route: 030
  4. TELMISARTAN-AMLODIPINE [Concomitant]
     Indication: HYPERTENSION
     Route: 065
  5. EMTRICITABINE 200 MG-TENOFOVIR 300 MG [Concomitant]
     Indication: PROPHYLAXIS AGAINST HIV INFECTION
     Route: 065
  6. TRAZODONE [Concomitant]
     Active Substance: TRAZODONE HYDROCHLORIDE
     Indication: INSOMNIA
     Route: 065

REACTIONS (1)
  - Jarisch-Herxheimer reaction [Recovered/Resolved]
